FAERS Safety Report 13655598 (Version 1)
Quarter: 2017Q2

REPORT INFORMATION
  Report Type: Spontaneous
  Country: JP (occurrence: JP)
  Receive Date: 20170615
  Receipt Date: 20170615
  Transmission Date: 20170830
  Serious: Yes (Other)
  Sender: FDA-Public Use
  Company Number: JP-009507513-1706JPN005568

PATIENT
  Age: 60 Year
  Sex: Female

DRUGS (28)
  1. OPDIVO [Suspect]
     Active Substance: NIVOLUMAB
     Dosage: 106MG, 3MG/KG/DAY
     Route: 041
     Dates: start: 20170510, end: 20170510
  2. OPDIVO [Suspect]
     Active Substance: NIVOLUMAB
     Dosage: 107MG, 3MG/KG/DAY
     Route: 041
     Dates: start: 20170524, end: 20170524
  3. NEXIUM [Concomitant]
     Active Substance: ESOMEPRAZOLE MAGNESIUM
  4. LOXOPROFEN [Concomitant]
     Active Substance: LOXOPROFEN
  5. TRICHLORMETHIAZIDE [Concomitant]
     Active Substance: TRICHLORMETHIAZIDE
  6. CARVEDILOL. [Concomitant]
     Active Substance: CARVEDILOL
  7. OPDIVO [Suspect]
     Active Substance: NIVOLUMAB
     Dosage: 103MG, 3MG/KG/DAY
     Route: 041
     Dates: start: 20170222, end: 20170222
  8. SPIRIVA [Concomitant]
     Active Substance: TIOTROPIUM BROMIDE MONOHYDRATE
     Dosage: UNK
  9. ADOAIR [Concomitant]
     Active Substance: FLUTICASONE PROPIONATE\SALMETEROL XINAFOATE
  10. FERROUS SULFATE. [Concomitant]
     Active Substance: FERROUS SULFATE
     Dosage: UNK
     Dates: start: 20160426
  11. OPDIVO [Suspect]
     Active Substance: NIVOLUMAB
     Dosage: 102MG, 3MG/KG/DAY
     Route: 041
     Dates: start: 20170208, end: 20170208
  12. TERNELIN [Suspect]
     Active Substance: TIZANIDINE
  13. OPDIVO [Suspect]
     Active Substance: NIVOLUMAB
     Indication: NON-SMALL CELL LUNG CANCER RECURRENT
     Dosage: 100MG, 3MG/KG/DAY
     Route: 041
     Dates: start: 20170111, end: 20170111
  14. OPDIVO [Suspect]
     Active Substance: NIVOLUMAB
     Dosage: 104MG, 3MG/KG/DAY
     Route: 041
     Dates: start: 20170308, end: 20170308
  15. LYRICA [Concomitant]
     Active Substance: PREGABALIN
     Dosage: UNK
  16. XYZAL [Concomitant]
     Active Substance: LEVOCETIRIZINE DIHYDROCHLORIDE
  17. TOCLASE TABLETS [Concomitant]
  18. METHYCOBAL [Concomitant]
     Active Substance: METHYLCOBALAMIN
  19. METGLUCO [Concomitant]
     Active Substance: METFORMIN HYDROCHLORIDE
  20. NIFEDIPINE. [Concomitant]
     Active Substance: NIFEDIPINE
  21. GLACTIV [Suspect]
     Active Substance: SITAGLIPTIN
     Indication: TYPE 2 DIABETES MELLITUS
     Dosage: STRENGTH: 12.5MG,25MG,50MG,100MG
     Route: 048
  22. OPDIVO [Suspect]
     Active Substance: NIVOLUMAB
     Dosage: 105MG, 3MG/KG/DAY
     Route: 041
     Dates: start: 20170322, end: 20170322
  23. AMBROXOL HYDROCHLORIDE [Concomitant]
     Active Substance: AMBROXOL HYDROCHLORIDE
  24. VALSARTAN. [Concomitant]
     Active Substance: VALSARTAN
  25. HERBAL NOS [Concomitant]
     Active Substance: HERBALS
  26. OPDIVO [Suspect]
     Active Substance: NIVOLUMAB
     Dosage: 101MG, 3MG/KG/DAY
     Route: 041
     Dates: start: 20170125, end: 20170125
  27. BIO-THREE [Concomitant]
     Active Substance: HERBALS
     Dosage: UNK
     Dates: start: 20160426
  28. LYRICA [Concomitant]
     Active Substance: PREGABALIN
     Dosage: UNK

REACTIONS (1)
  - Interstitial lung disease [Recovered/Resolved]

NARRATIVE: CASE EVENT DATE: 20170329
